FAERS Safety Report 23563949 (Version 7)
Quarter: 2025Q2

REPORT INFORMATION
  Report Type: Report from Study
  Country: CA (occurrence: CA)
  Receive Date: 20240226
  Receipt Date: 20250630
  Transmission Date: 20250716
  Serious: Yes (Hospitalization, Other)
  Sender: TAKEDA
  Company Number: CA-TAKEDA-2024TUS016196

PATIENT
  Sex: Female

DRUGS (4)
  1. VEDOLIZUMAB [Suspect]
     Active Substance: VEDOLIZUMAB
     Indication: Crohn^s disease
  2. VEDOLIZUMAB [Suspect]
     Active Substance: VEDOLIZUMAB
  3. VEDOLIZUMAB [Suspect]
     Active Substance: VEDOLIZUMAB
  4. PREDNISONE [Concomitant]
     Active Substance: PREDNISONE

REACTIONS (11)
  - Crohn^s disease [Not Recovered/Not Resolved]
  - Clostridium difficile infection [Recovering/Resolving]
  - Skin discolouration [Unknown]
  - Limb injury [Unknown]
  - Peripheral coldness [Unknown]
  - Blood pressure decreased [Unknown]
  - Musculoskeletal pain [Unknown]
  - Product preparation error [Unknown]
  - Asthenia [Unknown]
  - Fatigue [Unknown]
  - Abdominal pain [Unknown]
